FAERS Safety Report 9383156 (Version 1)
Quarter: 2013Q3

REPORT INFORMATION
  Report Type: Spontaneous
  Country: US (occurrence: US)
  Receive Date: 20130704
  Receipt Date: 20130704
  Transmission Date: 20140515
  Serious: No
  Sender: FDA-Public Use
  Company Number: US-009507513-1306USA014044

PATIENT
  Sex: Female

DRUGS (7)
  1. PEGINTRON [Suspect]
     Dosage: REDIPEN
  2. REBETOL [Suspect]
  3. PERCOCET [Concomitant]
  4. LORCET [Concomitant]
  5. VALIUM [Concomitant]
  6. PHENERGAN (PROMETHAZINE HYDROCHLORIDE) [Concomitant]
  7. CLONIDINE [Concomitant]

REACTIONS (8)
  - Unevaluable event [Recovered/Resolved]
  - Pain [Recovered/Resolved]
  - Influenza like illness [Recovered/Resolved]
  - Malaise [Recovered/Resolved]
  - Blood pressure increased [Recovered/Resolved]
  - Pyrexia [Recovered/Resolved]
  - Migraine [Recovered/Resolved]
  - Product quality issue [Unknown]
